FAERS Safety Report 11377244 (Version 1)
Quarter: 2015Q3

REPORT INFORMATION
  Report Type: Spontaneous
  Country: US (occurrence: US)
  Receive Date: 20150811
  Receipt Date: 20150811
  Transmission Date: 20151125
  Serious: No
  Sender: FDA-Public Use
  Company Number: US-ELI_LILLY_AND_COMPANY-US200810007074

PATIENT
  Sex: Male

DRUGS (3)
  1. HUMULIN 70/30 [Suspect]
     Active Substance: INSULIN HUMAN
  2. NOVOLIN [Concomitant]
     Active Substance: INSULIN HUMAN
  3. HUMULIN 70/30 [Suspect]
     Active Substance: INSULIN HUMAN
     Dates: start: 1988

REACTIONS (2)
  - Malaise [Recovered/Resolved]
  - Chest pain [Recovered/Resolved]

NARRATIVE: CASE EVENT DATE: 200810
